FAERS Safety Report 8140619-8 (Version None)
Quarter: 2012Q1

REPORT INFORMATION
  Report Type: 
  Country: None (occurrence: None)
  Receive Date: 20120216
  Receipt Date: 20120206
  Transmission Date: 20120608
  Serious: Yes (Hospitalization, Other)
  Sender: FDA-Public Use
  Company Number: CA-JNJFOC-20110104561

PATIENT
  Sex: Female

DRUGS (3)
  1. IBUPROFEN (ADVIL) [Concomitant]
  2. REMICADE [Suspect]
     Indication: ANKYLOSING SPONDYLITIS
     Route: 042
     Dates: start: 20091117
  3. REMICADE [Suspect]
     Route: 042
     Dates: start: 20091001

REACTIONS (2)
  - COMPLICATION OF PREGNANCY [None]
  - MATERNAL EXPOSURE DURING PREGNANCY [None]
